FAERS Safety Report 8286376-6 (Version None)
Quarter: 2012Q2

REPORT INFORMATION
  Report Type: 
  Country: None (occurrence: None)
  Receive Date: 20120416
  Receipt Date: 20120407
  Transmission Date: 20120825
  Serious: Yes (Other)
  Sender: FDA-Public Use
  Company Number: CN-ACCORD-013054

PATIENT
  Sex: Female

DRUGS (2)
  1. TACROLIMUS [Suspect]
     Indication: IGA NEPHROPATHY
     Dosage: 0.05-0.1 MG/KG/DAY
  2. PREDNISONE TAB [Suspect]
     Indication: IGA NEPHROPATHY
     Dosage: 0.5 MG/KG/DAY FOR ATLEAST 6 MONTHS
     Route: 048

REACTIONS (2)
  - VAGINAL INFECTION [None]
  - OFF LABEL USE [None]
